FAERS Safety Report 4755710-3 (Version None)
Quarter: 2005Q3

REPORT INFORMATION
  Report Type: 
  Country: None (occurrence: None)
  Receive Date: 20050830
  Receipt Date: 20020801
  Transmission Date: 20060218
  Serious: Yes (Other)
  Sender: FDA-Public Use
  Company Number: US-BRISTOL-MYERS SQUIBB COMPANY-13032867

PATIENT

DRUGS (1)
  1. ABILIFY [Suspect]

REACTIONS (1)
  - CONVULSION [None]
